FAERS Safety Report 4642410-3 (Version None)
Quarter: 2005Q2

REPORT INFORMATION
  Report Type: 
  Country: None (occurrence: None)
  Receive Date: 20050421
  Receipt Date: 20050421
  Transmission Date: 20051028
  Serious: Yes (Hospitalization)
  Sender: FDA-Public Use
  Company Number: None

PATIENT
  Sex: Female
  Weight: 58.6047 kg

DRUGS (6)
  1. GEMCITABINE    100MG      LILLY [Suspect]
     Indication: PANCREATIC CARCINOMA
     Dosage: 1000MG   DAY 1 AND 15    INTRAVENOU
     Route: 042
     Dates: start: 20050223, end: 20050323
  2. CISPLATIN [Suspect]
     Indication: PANCREATIC CARCINOMA
     Dosage: 20M    DAY 1 + 15   INTRAVENOU
     Route: 042
     Dates: start: 20050223, end: 20050323
  3. BEVACIZUMAB    25MG/ML    GENENTECH [Suspect]
     Indication: PANCREATIC CARCINOMA
     Dosage: 10MG/KG   DAY 1 + 15   INTRAVENOU
     Route: 042
     Dates: start: 20050223, end: 20050323
  4. LORAZEPAM [Concomitant]
  5. LOMOTIL [Concomitant]
  6. KYTRIL [Concomitant]

REACTIONS (6)
  - DEEP VEIN THROMBOSIS [None]
  - EMBOLISM [None]
  - HAEMATOCRIT DECREASED [None]
  - INTERNATIONAL NORMALISED RATIO INCREASED [None]
  - RECTAL HAEMORRHAGE [None]
  - THROMBOSIS [None]
